FAERS Safety Report 15357519 (Version 1)
Quarter: 2018Q3

REPORT INFORMATION
  Report Type: Spontaneous
  Country: US (occurrence: US)
  Receive Date: 20180906
  Receipt Date: 20180906
  Transmission Date: 20181010
  Serious: No
  Sender: FDA-Public Use
  Company Number: US-TEIKOKU PHARMA USA-TPU2018-00504

PATIENT
  Sex: Male
  Weight: 87.17 kg

DRUGS (3)
  1. LIDOCAINE PATCH [Suspect]
     Active Substance: LIDOCAINE
     Indication: SPINAL COLUMN STENOSIS
     Dosage: 1 PATCH APPLIED TO BACK IN THE MORNING FOR 12 HOURS ON, 12 HOURS OFF.
     Route: 061
  2. LIDOCAINE PATCH [Suspect]
     Active Substance: LIDOCAINE
     Indication: ARTHRALGIA
  3. LIDOCAINE PATCH [Suspect]
     Active Substance: LIDOCAINE
     Indication: INTERVERTEBRAL DISC PROTRUSION
     Dosage: 1 PATCH APPLIED TO BACK AND 1 PATCH APPLIED TO LEFT HIP FOR 12 HOURS ON 12 HOURS OFF.
     Route: 061

REACTIONS (3)
  - Hypoaesthesia [Unknown]
  - Pain in extremity [Unknown]
  - Arthralgia [Unknown]
